FAERS Safety Report 23672905 (Version 1)
Quarter: 2024Q1

REPORT INFORMATION
  Report Type: Spontaneous
  Country: PK (occurrence: PK)
  Receive Date: 20240326
  Receipt Date: 20240326
  Transmission Date: 20240409
  Serious: Yes (Other)
  Sender: FDA-Public Use
  Company Number: PK-MLMSERVICE-2024031148774171

PATIENT
  Age: 85 Year
  Sex: Female

DRUGS (25)
  1. LETROZOLE [Suspect]
     Active Substance: LETROZOLE
     Indication: Hormone receptor positive HER2 negative breast cancer
  2. ZOLEDRONIC ACID [Suspect]
     Active Substance: ZOLEDRONIC ACID
     Indication: Hormone receptor positive HER2 negative breast cancer
     Dosage: ONCE IN 6 MONTHS AS PART OF SYSTEMIC THERAPY.
     Route: 042
  3. PALBOCICLIB [Suspect]
     Active Substance: PALBOCICLIB
     Indication: Metastases to trachea
     Dosage: 100 MG A DAY, IN 4-WEEK CYCLES (3 WEEKS OF TREATMENT FOLLOWED BY 1 WEEK OFF)
     Route: 048
  4. ZOLEDRONIC ACID [Suspect]
     Active Substance: ZOLEDRONIC ACID
     Indication: Metastases to spine
     Dosage: ONCE IN 6 MONTHS AS PART OF SYSTEMIC THERAPY.
  5. LETROZOLE [Suspect]
     Active Substance: LETROZOLE
     Indication: Metastases to lymph nodes
  6. PALBOCICLIB [Suspect]
     Active Substance: PALBOCICLIB
     Indication: Metastases to lymph nodes
     Dosage: 100 MG A DAY, IN 4-WEEK CYCLES (3 WEEKS OF TREATMENT FOLLOWED BY 1 WEEK OFF)
     Route: 048
  7. PALBOCICLIB [Suspect]
     Active Substance: PALBOCICLIB
     Indication: Metastases to spine
     Dosage: 100 MG A DAY, IN 4-WEEK CYCLES (3 WEEKS OF TREATMENT FOLLOWED BY 1 WEEK OFF)
     Route: 048
  8. PALBOCICLIB [Suspect]
     Active Substance: PALBOCICLIB
     Indication: Hormone receptor positive HER2 negative breast cancer
     Dosage: 100 MG A DAY, IN 4-WEEK CYCLES (3 WEEKS OF TREATMENT FOLLOWED BY 1 WEEK OFF)
     Route: 048
  9. PALBOCICLIB [Suspect]
     Active Substance: PALBOCICLIB
     Indication: Invasive ductal breast carcinoma
     Dosage: 100 MG A DAY, IN 4-WEEK CYCLES (3 WEEKS OF TREATMENT FOLLOWED BY 1 WEEK OFF)
     Route: 048
  10. PALBOCICLIB [Suspect]
     Active Substance: PALBOCICLIB
     Indication: Metastases to the mediastinum
     Dosage: 100 MG A DAY, IN 4-WEEK CYCLES (3 WEEKS OF TREATMENT FOLLOWED BY 1 WEEK OFF)
     Route: 048
  11. PALBOCICLIB [Suspect]
     Active Substance: PALBOCICLIB
     Indication: Metastases to bone
     Dosage: 100 MG A DAY, IN 4-WEEK CYCLES (3 WEEKS OF TREATMENT FOLLOWED BY 1 WEEK OFF)
     Route: 048
  12. LETROZOLE [Suspect]
     Active Substance: LETROZOLE
     Indication: Intraductal proliferative breast lesion
  13. LETROZOLE [Suspect]
     Active Substance: LETROZOLE
     Indication: Metastases to the mediastinum
  14. LETROZOLE [Suspect]
     Active Substance: LETROZOLE
     Indication: Metastases to bone
  15. LETROZOLE [Suspect]
     Active Substance: LETROZOLE
     Indication: Invasive ductal breast carcinoma
  16. LETROZOLE [Suspect]
     Active Substance: LETROZOLE
     Indication: Invasive ductal breast carcinoma
  17. LETROZOLE [Suspect]
     Active Substance: LETROZOLE
     Indication: Metastases to trachea
  18. LETROZOLE [Suspect]
     Active Substance: LETROZOLE
     Indication: Metastases to spine
  19. ZOLEDRONIC ACID [Suspect]
     Active Substance: ZOLEDRONIC ACID
     Indication: Metastases to bone
     Dosage: ONCE IN 6 MONTHS AS PART OF SYSTEMIC THERAPY.
  20. ZOLEDRONIC ACID [Suspect]
     Active Substance: ZOLEDRONIC ACID
     Indication: Metastases to trachea
     Dosage: ONCE IN 6 MONTHS AS PART OF SYSTEMIC THERAPY.
  21. ZOLEDRONIC ACID [Suspect]
     Active Substance: ZOLEDRONIC ACID
     Indication: Intraductal proliferative breast lesion
     Dosage: ONCE IN 6 MONTHS AS PART OF SYSTEMIC THERAPY.
  22. ZOLEDRONIC ACID [Suspect]
     Active Substance: ZOLEDRONIC ACID
     Indication: Invasive ductal breast carcinoma
     Dosage: ONCE IN 6 MONTHS AS PART OF SYSTEMIC THERAPY.
  23. ZOLEDRONIC ACID [Suspect]
     Active Substance: ZOLEDRONIC ACID
     Indication: Metastases to lymph nodes
     Dosage: ONCE IN 6 MONTHS AS PART OF SYSTEMIC THERAPY.
  24. ZOLEDRONIC ACID [Suspect]
     Active Substance: ZOLEDRONIC ACID
     Indication: Metastases to the mediastinum
     Dosage: ONCE IN 6 MONTHS AS PART OF SYSTEMIC THERAPY.
  25. PALBOCICLIB [Suspect]
     Active Substance: PALBOCICLIB
     Indication: Intraductal proliferative breast lesion
     Dosage: 100 MG A DAY, IN 4-WEEK CYCLES (3 WEEKS OF TREATMENT FOLLOWED BY 1 WEEK OFF)
     Route: 048

REACTIONS (2)
  - Neutropenia [Unknown]
  - Thrombocytopenia [Unknown]
